FAERS Safety Report 9531751 (Version 2)
Quarter: 2013Q4

REPORT INFORMATION
  Report Type: Spontaneous
  Country: US (occurrence: US)
  Receive Date: 20130918
  Receipt Date: 20131007
  Transmission Date: 20140711
  Serious: No
  Sender: FDA-Public Use
  Company Number: US-PFIZER INC-2013262845

PATIENT
  Sex: Male

DRUGS (3)
  1. TOVIAZ [Suspect]
     Indication: HYPERTONIC BLADDER
     Dosage: 4 MG, 1X/DAY
  2. TOVIAZ [Suspect]
     Dosage: 8 MG, UNK
  3. DARIFENACIN HYDROBROMIDE [Concomitant]
     Dosage: 7.5 MG, UNK

REACTIONS (2)
  - Dry mouth [Unknown]
  - Abdominal discomfort [Unknown]
